FAERS Safety Report 7098424-X (Version None)
Quarter: 2010Q4

REPORT INFORMATION
  Report Type: 
  Country: None (occurrence: None)
  Receive Date: 20101112
  Receipt Date: 20101108
  Transmission Date: 20110411
  Serious: Yes (Other)
  Sender: FDA-Public Use
  Company Number: US-PFIZER INC-2010143108

PATIENT
  Sex: Female
  Weight: 99.773 kg

DRUGS (2)
  1. CELEBREX [Suspect]
     Indication: PAIN
     Dosage: 200 MG, 1X/DAY
     Route: 048
     Dates: start: 20070101, end: 20090101
  2. PLAQUENIL [Concomitant]
     Dosage: UNK

REACTIONS (1)
  - MYOCARDIAL INFARCTION [None]
